FAERS Safety Report 26191979 (Version 1)
Quarter: 2025Q4

REPORT INFORMATION
  Report Type: Spontaneous
  Country: US (occurrence: US)
  Receive Date: 20251223
  Receipt Date: 20251223
  Transmission Date: 20260117
  Serious: Yes (Other)
  Sender: INCYTE
  Company Number: US-INCYTE CORPORATION-2025IN014255

PATIENT
  Age: 67 Year

DRUGS (2)
  1. JAKAFI [Suspect]
     Active Substance: RUXOLITINIB
     Indication: Myelofibrosis
     Dosage: 15 MILLIGRAM, BID
     Route: 061
  2. JAKAFI [Suspect]
     Active Substance: RUXOLITINIB
     Dosage: 15 MILLIGRAM, QD
     Route: 061

REACTIONS (6)
  - Pulmonary haemorrhage [Unknown]
  - Pulmonary embolism [Unknown]
  - Pneumonia [Unknown]
  - Haemoptysis [Unknown]
  - White blood cell count abnormal [Recovering/Resolving]
  - Platelet count abnormal [Unknown]
